FAERS Safety Report 8481802-1 (Version None)
Quarter: 2012Q2

REPORT INFORMATION
  Report Type: 
  Country: None (occurrence: None)
  Receive Date: 20120626
  Receipt Date: 20120626
  Transmission Date: 20120825
  Serious: Yes (Other)
  Sender: FDA-Public Use
  Company Number: None

PATIENT
  Age: 29 Year
  Sex: Female
  Weight: 74.8435 kg

DRUGS (1)
  1. AZATHIOPRINE [Suspect]
     Indication: COLITIS ULCERATIVE
     Dosage: 100 MG DAILY PO
     Route: 048
     Dates: start: 20120507, end: 20120515

REACTIONS (5)
  - TACHYCARDIA [None]
  - LETHARGY [None]
  - FATIGUE [None]
  - SOMNOLENCE [None]
  - PYREXIA [None]
